FAERS Safety Report 6898958-4 (Version None)
Quarter: 2010Q3

REPORT INFORMATION
  Report Type: 
  Country: None (occurrence: None)
  Receive Date: 20100802
  Receipt Date: 20071211
  Transmission Date: 20110219
  Serious: No
  Sender: FDA-Public Use
  Company Number: US-PFIZER INC-2007104970

PATIENT
  Sex: Female
  Weight: 59 kg

DRUGS (4)
  1. LYRICA [Suspect]
     Indication: PAIN
     Dates: start: 20071210
  2. WELLBUTRIN [Concomitant]
  3. TOPAMAX [Concomitant]
  4. DESYREL [Concomitant]

REACTIONS (3)
  - ARTHROPATHY [None]
  - FATIGUE [None]
  - SOMNOLENCE [None]
